FAERS Safety Report 5303632-1 (Version None)
Quarter: 2007Q2

REPORT INFORMATION
  Report Type: 
  Country: None (occurrence: None)
  Receive Date: 20070420
  Receipt Date: 20070411
  Transmission Date: 20071010
  Serious: Yes (Other)
  Sender: FDA-Public Use
  Company Number: BR-SHR-BR-2007-013392

PATIENT
  Age: 34 Year
  Sex: Female

DRUGS (1)
  1. YASMIN [Suspect]
     Dosage: 1 TAB(S), UNK
     Route: 048
     Dates: start: 20061101

REACTIONS (6)
  - ASTHENIA [None]
  - BLOOD CHOLESTEROL INCREASED [None]
  - CHILLS [None]
  - NAUSEA [None]
  - SURGERY [None]
  - TACHYCARDIA [None]
